FAERS Safety Report 18674207 (Version 1)
Quarter: 2020Q4

REPORT INFORMATION
  Report Type: Other
  Country: CA (occurrence: CA)
  Receive Date: 20201229
  Receipt Date: 20201229
  Transmission Date: 20210114
  Serious: Yes (Death, Hospitalization, Other)
  Sender: FDA-Public Use
  Company Number: CA-APOTEX-2020AP024758

PATIENT
  Age: 70 Year
  Sex: Female

DRUGS (1)
  1. LETROZOLE. [Suspect]
     Active Substance: LETROZOLE
     Indication: BREAST CANCER METASTATIC
     Dosage: 2.5 MILLIGRAM, QD
     Route: 048

REACTIONS (3)
  - Altered state of consciousness [Fatal]
  - Breast cancer metastatic [Fatal]
  - Malignant neoplasm progression [Fatal]
